FAERS Safety Report 26155725 (Version 1)
Quarter: 2025Q4

REPORT INFORMATION
  Report Type: Report from Study
  Country: CN (occurrence: CN)
  Receive Date: 20251215
  Receipt Date: 20251215
  Transmission Date: 20260117
  Serious: Yes (Other)
  Sender: ACCORD
  Company Number: CN-Accord-517392

PATIENT

DRUGS (5)
  1. FLUOROURACIL [Suspect]
     Active Substance: FLUOROURACIL
     Indication: Hepatocellular carcinoma
     Dosage: 23-HOUR
  2. OXALIPLATIN [Suspect]
     Active Substance: OXALIPLATIN
     Indication: Hepatocellular carcinoma
     Dosage: 2-HOUR
  3. ADEBRELIMAB [Suspect]
     Active Substance: ADEBRELIMAB
     Indication: Hepatocellular carcinoma
     Dosage: ON 2ND DAY OF THE FIRST HAIC CYCLE AND REPEATED EVERY 3 WEEKS
  4. BEVACIZUMAB [Suspect]
     Active Substance: BEVACIZUMAB
     Indication: Hepatocellular carcinoma
     Dosage: ON SECOND DAY OF THE FIRST HAIC CYCLE AND REPEATED EVERY 3 WEEKS
  5. LEUCOVORIN [Suspect]
     Active Substance: LEUCOVORIN\LEUCOVORIN CALCIUM
     Indication: Hepatocellular carcinoma
     Dosage: 2-3-HOUR

REACTIONS (1)
  - Rash [Unknown]
